FAERS Safety Report 5930021-9 (Version None)
Quarter: 2008Q4

REPORT INFORMATION
  Report Type: 
  Country: None (occurrence: None)
  Receive Date: 20081024
  Receipt Date: 20081016
  Transmission Date: 20090506
  Serious: Yes (Other)
  Sender: FDA-Public Use
  Company Number: US-AMGEN-QUU314116

PATIENT
  Sex: Male

DRUGS (2)
  1. ARANESP [Suspect]
     Indication: ANAEMIA OF MALIGNANT DISEASE
  2. UNSPECIFIED ANTINEOPLASTIC AGENT [Concomitant]

REACTIONS (3)
  - HAEMOGLOBIN DECREASED [None]
  - HAEMORRHAGE [None]
  - THROMBOCYTOPENIA [None]
